FAERS Safety Report 14128335 (Version 1)
Quarter: 2017Q4

REPORT INFORMATION
  Report Type: Spontaneous
  Country: US (occurrence: None)
  Receive Date: 20171026
  Receipt Date: 20171026
  Transmission Date: 20180321
  Serious: Yes (Other)
  Sender: FDA-Public Use
  Company Number: None

PATIENT
  Age: 60 Year
  Sex: Male
  Weight: 78.93 kg

DRUGS (1)
  1. WARFARIN 5MG [Suspect]
     Active Substance: WARFARIN
     Indication: ATRIAL FIBRILLATION
     Dosage: TAKES A DIRECTED DAILY PO
     Route: 048

REACTIONS (2)
  - International normalised ratio abnormal [None]
  - Product substitution issue [None]
